FAERS Safety Report 20134755 (Version 2)
Quarter: 2022Q1

REPORT INFORMATION
  Report Type: Report from Study
  Country: DE (occurrence: DE)
  Receive Date: 20211201
  Receipt Date: 20220209
  Transmission Date: 20220423
  Serious: Yes (Hospitalization)
  Sender: FDA-Public Use
  Company Number: DE-TAKEDA-2021TUS075277

PATIENT
  Age: 27 Year
  Sex: Male

DRUGS (12)
  1. TEDUGLUTIDE [Suspect]
     Active Substance: TEDUGLUTIDE
     Indication: Short-bowel syndrome
     Dosage: 2 MILLIGRAM, QD
     Route: 065
     Dates: start: 20150221, end: 201607
  2. TEDUGLUTIDE [Suspect]
     Active Substance: TEDUGLUTIDE
     Indication: Short-bowel syndrome
     Dosage: 2 MILLIGRAM, QD
     Route: 065
     Dates: start: 20150221, end: 201607
  3. TEDUGLUTIDE [Suspect]
     Active Substance: TEDUGLUTIDE
     Indication: Short-bowel syndrome
     Dosage: 2 MILLIGRAM, QD
     Route: 065
     Dates: start: 20150221, end: 201607
  4. TEDUGLUTIDE [Suspect]
     Active Substance: TEDUGLUTIDE
     Indication: Short-bowel syndrome
     Dosage: 2 MILLIGRAM, QD
     Route: 065
     Dates: start: 20150221, end: 201607
  5. TEDUGLUTIDE [Suspect]
     Active Substance: TEDUGLUTIDE
     Dosage: 2.8 MILLIGRAM, QD
     Route: 065
     Dates: start: 201701, end: 201709
  6. TEDUGLUTIDE [Suspect]
     Active Substance: TEDUGLUTIDE
     Dosage: 2.8 MILLIGRAM, QD
     Route: 065
     Dates: start: 201701, end: 201709
  7. TEDUGLUTIDE [Suspect]
     Active Substance: TEDUGLUTIDE
     Dosage: 2.8 MILLIGRAM, QD
     Route: 065
     Dates: start: 201701, end: 201709
  8. TEDUGLUTIDE [Suspect]
     Active Substance: TEDUGLUTIDE
     Dosage: 2.8 MILLIGRAM, QD
     Route: 065
     Dates: start: 201701, end: 201709
  9. JORVEZA [Concomitant]
     Indication: Crohn^s disease
     Dosage: 2 MILLIGRAM, BID
     Route: 048
     Dates: start: 202110, end: 202111
  10. JORVEZA [Concomitant]
     Indication: Dysphagia
     Dosage: 1 MILLIGRAM, BID
     Route: 048
     Dates: start: 202111
  11. CITALOPRAM [Concomitant]
     Active Substance: CITALOPRAM HYDROBROMIDE
     Indication: Depression
     Dosage: 20 MILLIGRAM, BID
     Route: 048
     Dates: start: 20201029, end: 20210120
  12. CITALOPRAM [Concomitant]
     Active Substance: CITALOPRAM HYDROBROMIDE
     Dosage: 40 MILLIGRAM, QD
     Route: 048
     Dates: start: 20210121

REACTIONS (1)
  - Drug specific antibody [Recovered/Resolved]

NARRATIVE: CASE EVENT DATE: 20160608
